FAERS Safety Report 9104200 (Version 1)
Quarter: 2013Q1

REPORT INFORMATION
  Report Type: Spontaneous
  Country: ID (occurrence: ID)
  Receive Date: 20130219
  Receipt Date: 20130219
  Transmission Date: 20140127
  Serious: Yes (Death, Other)
  Sender: FDA-Public Use
  Company Number: PHHY2013ID014843

PATIENT
  Age: 44 Year
  Sex: Male

DRUGS (2)
  1. GLIVEC [Suspect]
     Indication: GASTROINTESTINAL STROMAL TUMOUR
     Dosage: 800 MG, PER DAY
     Route: 048
     Dates: start: 201009, end: 201107
  2. GLIVEC [Suspect]
     Dosage: 800 MG, PER DAY
     Route: 048
     Dates: start: 201202, end: 201205

REACTIONS (9)
  - Death [Fatal]
  - Convulsion [Unknown]
  - Full blood count abnormal [Unknown]
  - Intra-abdominal haemorrhage [Unknown]
  - Neoplasm [Unknown]
  - Haemorrhage intracranial [Unknown]
  - White blood cell count increased [Unknown]
  - Platelet count decreased [Unknown]
  - Pyrexia [Unknown]
